FAERS Safety Report 6447208-1 (Version None)
Quarter: 2009Q4

REPORT INFORMATION
  Report Type: 
  Country: None (occurrence: None)
  Receive Date: 20091119
  Receipt Date: 20091105
  Transmission Date: 20100525
  Serious: Yes (Life-Threatening, Hospitalization)
  Sender: FDA-Public Use
  Company Number: DE-MYLANLABS-2009S1019376

PATIENT
  Age: 78 Year
  Sex: Male
  Weight: 75 kg

DRUGS (8)
  1. VERAPAMIL [Suspect]
     Indication: CORONARY ARTERY DISEASE
     Route: 048
     Dates: start: 20090701, end: 20090819
  2. DEPRESSAN [Concomitant]
     Indication: HYPERTENSION
     Route: 048
  3. MICARDIS HCT [Concomitant]
     Indication: HYPERTENSION
     Dosage: 1 DF= 80MG TELMISARTAN + 12.5MG HCT
     Route: 048
  4. ATMADISC [Concomitant]
     Indication: ASTHMA
     Dosage: 1 DF= 25MG SALMETEROL + 125UG FLUTICASON
     Route: 055
  5. GLIMEPIRIDE [Concomitant]
     Indication: TYPE 2 DIABETES MELLITUS
     Route: 048
     Dates: start: 20070101
  6. PRAVASTATIN [Concomitant]
     Indication: HYPERPROTEINAEMIA
     Route: 048
     Dates: start: 20070101
  7. ACETYLSALICYLIC ACID [Concomitant]
     Indication: ISCHAEMIC HEART DISEASE PROPHYLAXIS
     Route: 048
     Dates: start: 20080101
  8. SOTALOL HCL [Concomitant]
     Indication: ARRHYTHMIA
     Dosage: DOSIS UND APPLIKATIONSHAUFIGKEIT SIND UNBEKANNT
     Route: 048
     Dates: start: 20080101, end: 20090708

REACTIONS (1)
  - CARDIAC FAILURE [None]
